FAERS Safety Report 10792484 (Version 2)
Quarter: 2015Q1

REPORT INFORMATION
  Report Type: Spontaneous
  Country: US (occurrence: None)
  Receive Date: 20150211
  Receipt Date: 20150320
  Transmission Date: 20150721
  Serious: Yes (Death)
  Sender: FDA-Public Use
  Company Number: US-H14001-15-00185

PATIENT
  Age: 77 Year
  Sex: Male

DRUGS (28)
  1. CARFILZOMIB [Suspect]
     Active Substance: CARFILZOMIB
     Indication: PLASMA CELL MYELOMA
     Dosage: (50 MG,DAYS 1,2,8,9,15,16 Q28 DAYS),INTRAVENOUS (NOT OTHERWISE SPECIFIED)
     Route: 042
     Dates: start: 20131030, end: 20131119
  2. TRAMADOL HYDROCHLORIDE. [Concomitant]
     Active Substance: TRAMADOL HYDROCHLORIDE
  3. FINASTERIDE. [Concomitant]
     Active Substance: FINASTERIDE
  4. MANNITOL. [Concomitant]
     Active Substance: MANNITOL
  5. MORPHINE SULFATE. [Concomitant]
     Active Substance: MORPHINE SULFATE
  6. PROAIR HFA [Concomitant]
     Active Substance: ALBUTEROL SULFATE
  7. ANECTINE (SUXAMETHONIUM CHLORIDE) [Concomitant]
  8. ETOMIDATE. [Concomitant]
     Active Substance: ETOMIDATE
  9. DEXAMETHASONE. [Suspect]
     Active Substance: DEXAMETHASONE
     Indication: PLASMA CELL MYELOMA
     Dosage: (10 MG,DAYS 1,2,8,9,15,16 Q28 DAYS),INTRAVENOUS (NOT OTHERWISE SPECIFIED)
     Route: 042
     Dates: start: 20131002, end: 20131119
  10. OXYCODONE [Concomitant]
     Active Substance: OXYCODONE
  11. ACYCLOVIR (ACICLOVIR) (ACICLOVIR) [Concomitant]
     Active Substance: ACYCLOVIR
  12. OMEGA 3-6-9 (FISH OIL) [Concomitant]
  13. OMEPRAZOLE. [Concomitant]
     Active Substance: OMEPRAZOLE
  14. POTASSIUM CHLORIDE. [Concomitant]
     Active Substance: POTASSIUM CHLORIDE
  15. NORCO (VICODIN) (UNKNOWN) (PARACETAMOL, HYDROCODONE BITARTRATE) [Concomitant]
  16. LIDOCAINE. [Concomitant]
     Active Substance: LIDOCAINE
  17. VALIUM [Concomitant]
     Active Substance: DIAZEPAM
  18. ISMO (ISOSORBIDE MONONITRATE) [Concomitant]
  19. ZOCOR [Concomitant]
     Active Substance: SIMVASTATIN
  20. ATIVAN [Concomitant]
     Active Substance: LORAZEPAM
  21. LORAZEPAM. [Concomitant]
     Active Substance: LORAZEPAM
  22. TRAZODONE HCL (TRAZODONE HYDROCHLORIDE) [Concomitant]
  23. GRALISE (GABAPENTIN) [Concomitant]
  24. CARDENE (NICARDIPINE HYDROCHLORIDE) [Concomitant]
  25. COMPAZINE [Concomitant]
     Active Substance: PROCHLORPERAZINE MALEATE
  26. FOLIC ACID. [Concomitant]
     Active Substance: FOLIC ACID
  27. TENORMIN [Concomitant]
     Active Substance: ATENOLOL
  28. FLUTICASONE PROPIONATE. [Concomitant]
     Active Substance: FLUTICASONE PROPIONATE

REACTIONS (8)
  - Disease complication [None]
  - Confusional state [None]
  - Vomiting [None]
  - Brain herniation [None]
  - Cerebral haemorrhage [None]
  - Unresponsive to stimuli [None]
  - Hydrocephalus [None]
  - Headache [None]

NARRATIVE: CASE EVENT DATE: 20131119
